FAERS Safety Report 8060971-1 (Version None)
Quarter: 2012Q1

REPORT INFORMATION
  Report Type: 
  Country: None (occurrence: None)
  Receive Date: 20120120
  Receipt Date: 20120113
  Transmission Date: 20120608
  Serious: Yes (Hospitalization, Other)
  Sender: FDA-Public Use
  Company Number: US-AMGEN-USASP2012002065

PATIENT
  Sex: Male
  Weight: 2.9 kg

DRUGS (3)
  1. PRENATAL                           /00231801/ [Concomitant]
     Dosage: UNK UNK, QD
     Route: 064
  2. ENBREL [Suspect]
     Dosage: 50 MG, QWK
     Route: 064
     Dates: start: 20020101, end: 20030101
  3. PREDNISONE TAB [Concomitant]
     Dosage: UNK
     Route: 064

REACTIONS (3)
  - BLOOD GLUCOSE DECREASED [None]
  - ALLERGIC BRONCHITIS [None]
  - ASTHMA [None]
